FAERS Safety Report 5645785-1 (Version None)
Quarter: 2008Q1

REPORT INFORMATION
  Report Type: 
  Country: None (occurrence: None)
  Receive Date: 20080229
  Receipt Date: 20080218
  Transmission Date: 20080703
  Serious: Yes (Other)
  Sender: FDA-Public Use
  Company Number: US-PFIZER INC-2007104190

PATIENT
  Age: 72 Year
  Sex: Female
  Weight: 68 kg

DRUGS (5)
  1. LYRICA [Suspect]
     Indication: PAIN
     Route: 048
     Dates: start: 20071025, end: 20071025
  2. LYRICA [Suspect]
  3. ZOCOR [Concomitant]
  4. LISINOPRIL [Concomitant]
  5. ALL OTHER THERAPEUTIC PRODUCTS [Concomitant]

REACTIONS (8)
  - CONTUSION [None]
  - DELIRIUM [None]
  - DEPRESSION [None]
  - DISORIENTATION [None]
  - FALL [None]
  - MEMORY IMPAIRMENT [None]
  - PARAPLEGIA [None]
  - RIB FRACTURE [None]
